FAERS Safety Report 23109713 (Version 5)
Quarter: 2024Q1

REPORT INFORMATION
  Report Type: Spontaneous
  Country: US (occurrence: US)
  Receive Date: 20231026
  Receipt Date: 20240321
  Transmission Date: 20240409
  Serious: Yes (Other)
  Sender: FDA-Public Use
  Company Number: US-PFIZER INC-202300340650

PATIENT
  Age: 79 Year
  Sex: Female

DRUGS (2)
  1. XELJANZ [Suspect]
     Active Substance: TOFACITINIB CITRATE
     Indication: Rheumatoid arthritis
     Dosage: 5 MG, 2X/DAY PO BID
     Route: 048
  2. XELJANZ [Suspect]
     Active Substance: TOFACITINIB CITRATE
     Dosage: 5 MG, 1X/DAY PO QD
     Route: 048
     Dates: end: 202312

REACTIONS (10)
  - Spinal operation [Unknown]
  - Seizure [Unknown]
  - Back pain [Not Recovered/Not Resolved]
  - Osteoporosis [Unknown]
  - Arthralgia [Unknown]
  - Muscular weakness [Unknown]
  - Pain [Unknown]
  - Sciatica [Recovering/Resolving]
  - Product prescribing error [Unknown]
  - Intentional product misuse [Unknown]
